FAERS Safety Report 5487095-1 (Version None)
Quarter: 2007Q4

REPORT INFORMATION
  Report Type: 
  Country: None (occurrence: None)
  Receive Date: 20071016
  Receipt Date: 20071005
  Transmission Date: 20080405
  Serious: Yes (Hospitalization, Other)
  Sender: FDA-Public Use
  Company Number: US-SHR-US-2007-037722

PATIENT
  Age: 53 Year
  Sex: Male

DRUGS (3)
  1. LEUKINE [Suspect]
     Dosage: 5MG/KG/DAY
     Dates: start: 20010201
  2. CYCLOPHOSPHAMIDE [Suspect]
     Dosage: 4.5G/M2, ONE DOSE
     Dates: start: 20010201, end: 20010201
  3. NEUPOGEN [Suspect]
     Dosage: 10UG/KG/DAY ON DAY 11
     Dates: start: 20010201

REACTIONS (4)
  - FEBRILE NEUTROPENIA [None]
  - HYPOTENSION [None]
  - RENAL FAILURE [None]
  - SPLENIC RUPTURE [None]
